FAERS Safety Report 8166682-6 (Version None)
Quarter: 2012Q1

REPORT INFORMATION
  Report Type: 
  Country: None (occurrence: None)
  Receive Date: 20120227
  Receipt Date: 20120214
  Transmission Date: 20120608
  Serious: Yes (Other)
  Sender: FDA-Public Use
  Company Number: US-SANOFI-AVENTIS-2012SA009617

PATIENT
  Age: 73 Year
  Sex: Male

DRUGS (6)
  1. LIPITOR [Concomitant]
  2. WARFARIN SODIUM [Concomitant]
  3. PREVACID [Concomitant]
  4. HUMULIN N [Concomitant]
  5. MULTAQ [Suspect]
     Indication: ATRIAL FIBRILLATION
     Route: 048
     Dates: start: 20110101
  6. ANTIGLAUCOMA PREPARATIONS AND MIOTICS [Concomitant]
     Indication: GLAUCOMA

REACTIONS (2)
  - HEART RATE DECREASED [None]
  - PROSTATIC SPECIFIC ANTIGEN INCREASED [None]
